FAERS Safety Report 9026548 (Version 1)
Quarter: 2012Q4

REPORT INFORMATION
  Report Type: Spontaneous
  Country: US (occurrence: None)
  Receive Date: 20121217
  Receipt Date: 20121217
  Transmission Date: 20130627
  Serious: Yes (Death)
  Sender: FDA-Public Use
  Company Number: None

PATIENT
  Sex: Male

DRUGS (1)
  1. VOTRIENT [Suspect]
     Indication: KIDNEY CANCER
     Route: 048
     Dates: start: 20121027, end: 201211

REACTIONS (3)
  - Renal cancer [None]
  - Malignant neoplasm progression [None]
  - Treatment failure [None]
